FAERS Safety Report 5796124-7 (Version None)
Quarter: 2008Q3

REPORT INFORMATION
  Report Type: 
  Country: None (occurrence: None)
  Receive Date: 20080701
  Receipt Date: 20080620
  Transmission Date: 20090109
  Serious: Yes (Hospitalization)
  Sender: FDA-Public Use
  Company Number: CN-BRISTOL-MYERS SQUIBB COMPANY-14211122

PATIENT
  Age: 39 Year
  Sex: Male
  Weight: 58 kg

DRUGS (4)
  1. METFORMIN HCL [Suspect]
     Indication: DIABETES MELLITUS
     Route: 048
     Dates: start: 20080415, end: 20080512
  2. BLINDED: LIRAGLUTIDE [Suspect]
     Indication: DIABETES MELLITUS
     Dates: start: 20080507, end: 20080512
  3. BLINDED: GLIMEPIRIDE [Suspect]
     Indication: DIABETES MELLITUS
     Dates: start: 20080507, end: 20080512
  4. BLINDED: PLACEBO [Suspect]
     Indication: DIABETES MELLITUS
     Dosage: INDICATION FOR USE WITH GLIMEPIRIDE ARM DIABETES MELLITUS.
     Dates: start: 20080307, end: 20080512

REACTIONS (2)
  - DIABETIC KETOACIDOSIS [None]
  - VOMITING [None]
